FAERS Safety Report 15072768 (Version 1)
Quarter: 2018Q2

REPORT INFORMATION
  Report Type: Other
  Country: DE (occurrence: DE)
  Receive Date: 20180627
  Receipt Date: 20180627
  Transmission Date: 20180711
  Serious: No
  Sender: FDA-Public Use
  Company Number: DE-LUPIN PHARMACEUTICALS INC.-2017-04458

PATIENT

DRUGS (1)
  1. SIMVASTATIN TABLETS USP, 40 MG [Suspect]
     Active Substance: SIMVASTATIN
     Indication: HYPERLIPIDAEMIA
     Dosage: 40 MG, QD
     Route: 065
     Dates: start: 2004, end: 2015

REACTIONS (2)
  - Pain in extremity [Recovered/Resolved]
  - Myalgia [Recovered/Resolved]
